FAERS Safety Report 22065386 (Version 1)
Quarter: 2023Q1

REPORT INFORMATION
  Report Type: Spontaneous
  Country: US (occurrence: None)
  Receive Date: 20230305
  Receipt Date: 20230305
  Transmission Date: 20230418
  Serious: Yes (unspecified)
  Sender: FDA-Public Use
  Company Number: None

PATIENT
  Age: 59 Year
  Sex: Female
  Weight: 63 kg

DRUGS (62)
  1. SERTRALINE [Suspect]
     Active Substance: SERTRALINE HYDROCHLORIDE
     Indication: Fibromyalgia
     Dosage: OTHER QUANTITY : 1 TABLET(S);?FREQUENCY : DAILY;?
     Dates: start: 19990115, end: 20200315
  2. SERTRALINE [Suspect]
     Active Substance: SERTRALINE HYDROCHLORIDE
     Indication: Migraine prophylaxis
  3. ZOLOFT [Suspect]
     Active Substance: SERTRALINE HYDROCHLORIDE
  4. AMBIEN [Concomitant]
     Active Substance: ZOLPIDEM TARTRATE
  5. AZELASTINE HYDROCHLORIDE\FLUTICASONE PROPIONATE [Concomitant]
     Active Substance: AZELASTINE HYDROCHLORIDE\FLUTICASONE PROPIONATE
  6. BACLOFEN [Concomitant]
     Active Substance: BACLOFEN
  7. BENADRYL [Concomitant]
     Active Substance: DIPHENHYDRAMINE HYDROCHLORIDE
  8. BUDESONIDE [Concomitant]
     Active Substance: BUDESONIDE
  9. CELEBREX [Concomitant]
     Active Substance: CELECOXIB
  10. CLARITIN [Concomitant]
     Active Substance: LORATADINE
  11. cortef (hydrocortisone) [Concomitant]
  12. cytomel (liothyronine) [Concomitant]
  13. DIFLUCAN [Concomitant]
     Active Substance: FLUCONAZOLE
  14. ESTRADIOL [Concomitant]
     Active Substance: ESTRADIOL
  15. FERROUS GLUCONATE [Concomitant]
     Active Substance: FERROUS GLUCONATE
  16. FLEXERIL [Concomitant]
     Active Substance: CYCLOBENZAPRINE HYDROCHLORIDE
  17. GABAPENTIN [Concomitant]
     Active Substance: GABAPENTIN
  18. HYDROXOCOBALAMIN [Concomitant]
     Active Substance: HYDROXOCOBALAMIN
  19. inderal la (propranolol) [Concomitant]
  20. KLONOPIN [Concomitant]
     Active Substance: CLONAZEPAM
  21. pepcid ac (famotidine) [Concomitant]
  22. PROGESTERONE [Concomitant]
     Active Substance: PROGESTERONE
  23. RIZATRIPTAN [Concomitant]
     Active Substance: RIZATRIPTAN
  24. SINGULAIR [Concomitant]
     Active Substance: MONTELUKAST SODIUM
  25. SYNTHROID [Concomitant]
     Active Substance: LEVOTHYROXINE SODIUM
  26. TRAMADOL [Concomitant]
     Active Substance: TRAMADOL
  27. valtrex (valacyclovir) [Concomitant]
  28. vitamin d3 cholecalciferol [Concomitant]
  29. ZOFRAN [Concomitant]
     Active Substance: ONDANSETRON HYDROCHLORIDE
  30. pure brand methyl multiple vitamin/mineral [Concomitant]
  31. bone health formula (calcium, mag, co-factors) [Concomitant]
  32. joint health formula (glucosamine, msm, chondroitin, etc) [Concomitant]
  33. magnesium malate/glycinate [Concomitant]
  34. VITAMIN D [Concomitant]
     Active Substance: VITAMIN D NOS
  35. VITAMIN K [Concomitant]
     Active Substance: PHYTONADIONE
  36. VITAMIN C [Concomitant]
     Active Substance: ASCORBIC ACID
  37. IRON [Concomitant]
     Active Substance: IRON
  38. IRON [Concomitant]
     Active Substance: IRON
  39. ZINC [Concomitant]
     Active Substance: ZINC
  40. bcaa^s (branched chain amino acids) [Concomitant]
  41. TRYPTOPHAN [Concomitant]
     Active Substance: TRYPTOPHAN
  42. l-glutamine [Concomitant]
  43. LYSINE [Concomitant]
     Active Substance: LYSINE
  44. r-lipoic-acid [Concomitant]
  45. nac (n-acetyl cysteine) [Concomitant]
  46. CURCUMIN [Concomitant]
     Active Substance: CURCUMIN
  47. DIETARY SUPPLEMENT\HERBALS\INDIAN FRANKINCENSE [Concomitant]
     Active Substance: DIETARY SUPPLEMENT\HERBALS\INDIAN FRANKINCENSE
  48. BLACK COHOSH [Concomitant]
     Active Substance: BLACK COHOSH
  49. olive leaf/fruit extract [Concomitant]
  50. DIETARY SUPPLEMENT\HERBALS\MILK THISTLE [Concomitant]
     Active Substance: DIETARY SUPPLEMENT\HERBALS\MILK THISTLE
  51. MELATONIN [Concomitant]
     Active Substance: MELATONIN
  52. PRASTERONE [Concomitant]
     Active Substance: PRASTERONE
  53. dim [Concomitant]
  54. PROBIOTICS NOS [Concomitant]
     Active Substance: PROBIOTICS NOS
  55. QUERCETIN [Concomitant]
     Active Substance: QUERCETIN
  56. FISH OIL\OMEGA-3 FATTY ACIDS [Concomitant]
     Active Substance: FISH OIL\OMEGA-3 FATTY ACIDS
  57. EVENING PRIMROSE OIL\HERBALS [Concomitant]
     Active Substance: EVENING PRIMROSE OIL\HERBALS
  58. PQQ [Concomitant]
  59. COENZYME Q10 [Concomitant]
     Active Substance: DIETARY SUPPLEMENT\UBIDECARENONE
  60. LUTEIN [Concomitant]
     Active Substance: LUTEIN
  61. SERRAPEPTASE [Concomitant]
     Active Substance: SERRAPEPTASE
  62. ASTAXANTHIN [Concomitant]
     Active Substance: ASTAXANTHIN

REACTIONS (2)
  - Colitis microscopic [None]
  - Product use complaint [None]

NARRATIVE: CASE EVENT DATE: 20221019
